FAERS Safety Report 17658234 (Version 5)
Quarter: 2020Q3

REPORT INFORMATION
  Report Type: Report from Study
  Country: US (occurrence: US)
  Receive Date: 20200412
  Receipt Date: 20200904
  Transmission Date: 20201102
  Serious: No
  Sender: FDA-Public Use
  Company Number: NVSC2020US079383

PATIENT
  Age: 76 Year
  Sex: Female

DRUGS (3)
  1. BEOVU [Suspect]
     Active Substance: BROLUCIZUMAB-DBLL
     Dosage: UNK (LEFT EYE)
     Route: 047
     Dates: start: 20200619
  2. BEOVU [Suspect]
     Active Substance: BROLUCIZUMAB-DBLL
     Indication: NEOVASCULAR AGE-RELATED MACULAR DEGENERATION
     Dosage: UNK
     Route: 047
  3. BEOVU [Suspect]
     Active Substance: BROLUCIZUMAB-DBLL
     Dosage: UNK
     Route: 047

REACTIONS (8)
  - Blood glucose increased [Unknown]
  - Metamorphopsia [Unknown]
  - Hypersensitivity [Unknown]
  - Eye pruritus [Unknown]
  - Sneezing [Unknown]
  - Intra-ocular injection complication [Unknown]
  - Headache [Unknown]
  - Diplopia [Unknown]

NARRATIVE: CASE EVENT DATE: 20200324
